FAERS Safety Report 23201250 (Version 1)
Quarter: 2023Q4

REPORT INFORMATION
  Report Type: Spontaneous
  Country: DE (occurrence: DE)
  Receive Date: 20231118
  Receipt Date: 20231118
  Transmission Date: 20240110
  Serious: Yes (Hospitalization, Other)
  Sender: FDA-Public Use
  Company Number: DE-EMBRYOTOX-202207204

PATIENT
  Sex: Female
  Weight: 62 kg

DRUGS (7)
  1. CARBAMAZEPINE [Suspect]
     Active Substance: CARBAMAZEPINE
     Indication: Partial seizures
     Dosage: 200 MG, Q8H (0 - 26.3. GESTATIONAL WEEK)
     Route: 048
     Dates: start: 20220424, end: 20221026
  2. ASPIRIN [Concomitant]
     Active Substance: ASPIRIN
     Indication: Prophylaxis of abortion
     Dosage: 100 MG, QD (5. - 26.3. GESTATIONAL WEEK)
     Route: 048
  3. LEVOTHYROXINE SODIUM [Concomitant]
     Active Substance: LEVOTHYROXINE SODIUM
     Indication: Autoimmune thyroiditis
     Dosage: 125 UG, QD (AT THE BEGINNING OF PREGNANCY, INCREASED AT GW19) (0. - 26.3. GESTATIONAL WEEK)
     Route: 048
  4. LEVOTHYROXINE SODIUM [Concomitant]
     Active Substance: LEVOTHYROXINE SODIUM
     Dosage: 150 UG, QD
     Route: 048
     Dates: start: 20220424, end: 20231026
  5. PROGESTERONE [Concomitant]
     Active Substance: PROGESTERONE
     Indication: Prophylaxis of abortion
     Dosage: UNK
     Route: 048
  6. ENOXAPARIN SODIUM [Concomitant]
     Active Substance: ENOXAPARIN SODIUM
     Indication: Prophylaxis of abortion
     Dosage: UNK 2(6.3 - 26.3. GESTATIONAL WEEK)
     Route: 058
  7. FOLIC ACID [Concomitant]
     Active Substance: FOLIC ACID
     Indication: Nutritional supplementation
     Dosage: 5 MG, QD (0 - 8.4 GESTATIONAL WEEK)
     Route: 065

REACTIONS (1)
  - Foetal death [Unknown]
